FAERS Safety Report 5030744-2 (Version None)
Quarter: 2006Q2

REPORT INFORMATION
  Report Type: 
  Country: None (occurrence: None)
  Receive Date: 20060615
  Receipt Date: 20060603
  Transmission Date: 20061013
  Serious: Yes (Other)
  Sender: FDA-Public Use
  Company Number: 14169

PATIENT
  Age: 65 Year
  Sex: Male

DRUGS (1)
  1. METHYLENE BLUE [Suspect]
     Indication: PARATHYROIDECTOMY
     Dosage: 7.5 MG/KG UNK OTHER

REACTIONS (8)
  - AGITATION [None]
  - CHILLS [None]
  - DEPRESSED LEVEL OF CONSCIOUSNESS [None]
  - DISORIENTATION [None]
  - DRUG TOXICITY [None]
  - HAEMODIALYSIS [None]
  - HYPERPYREXIA [None]
  - POST PROCEDURAL COMPLICATION [None]
